FAERS Safety Report 22080453 (Version 3)
Quarter: 2023Q2

REPORT INFORMATION
  Report Type: Spontaneous
  Country: CA (occurrence: CA)
  Receive Date: 20230309
  Receipt Date: 20230615
  Transmission Date: 20230722
  Serious: Yes (Hospitalization, Other)
  Sender: FDA-Public Use
  Company Number: CA-002147023-NVSC2023CA049653

PATIENT
  Age: 11 Year
  Sex: Male

DRUGS (70)
  1. ARIPIPRAZOLE [Suspect]
     Active Substance: ARIPIPRAZOLE
     Indication: Product used for unknown indication
     Dosage: 2 MG, TID
     Route: 048
  2. ARIPIPRAZOLE [Suspect]
     Active Substance: ARIPIPRAZOLE
     Dosage: 2 MG, QD
     Route: 048
  3. HYDROMORPHONE HYDROCHLORIDE [Suspect]
     Active Substance: HYDROMORPHONE HYDROCHLORIDE
     Indication: Back pain
     Dosage: UNK
     Route: 065
  4. HYDROMORPHONE HYDROCHLORIDE [Suspect]
     Active Substance: HYDROMORPHONE HYDROCHLORIDE
     Indication: Pain management
  5. KETOROLAC [Suspect]
     Active Substance: KETOROLAC TROMETHAMINE
     Indication: Pain
     Dosage: 20 MG, QID 4 EVERY 1 DAYS
     Route: 048
  6. KETOROLAC [Suspect]
     Active Substance: KETOROLAC TROMETHAMINE
     Dosage: UNK
     Route: 065
  7. CLONIDINE [Suspect]
     Active Substance: CLONIDINE
     Indication: Product used for unknown indication
     Dosage: 0.1 MG, QD
     Route: 048
  8. CLONIDINE [Suspect]
     Active Substance: CLONIDINE
     Dosage: 0.05 MG, QD
     Route: 048
  9. DIPHENHYDRAMINE [Suspect]
     Active Substance: DIPHENHYDRAMINE
     Indication: Pruritus
     Dosage: 12.5 MG, QID 4 EVERY 1 DAY
     Route: 048
  10. MONTELUKAST [Suspect]
     Active Substance: MONTELUKAST SODIUM
     Indication: Product used for unknown indication
     Dosage: 10 MG, QD
     Route: 048
  11. PANTOPRAZOLE [Suspect]
     Active Substance: PANTOPRAZOLE
     Indication: Product used for unknown indication
     Dosage: 40 MG, QD
     Route: 048
  12. PHENOBARBITAL [Suspect]
     Active Substance: PHENOBARBITAL
     Indication: Product used for unknown indication
     Dosage: 30 MG, BID
     Route: 048
  13. BACLOFEN [Suspect]
     Active Substance: BACLOFEN
     Indication: Product used for unknown indication
     Dosage: 20 MG, TID
     Route: 048
  14. BISACODYL [Suspect]
     Active Substance: BISACODYL
     Indication: Child abuse
     Dosage: 5 MG, QD
     Route: 048
  15. BISACODYL [Suspect]
     Active Substance: BISACODYL
     Dosage: 5 MG, QD
     Route: 065
  16. CELECOXIB [Suspect]
     Active Substance: CELECOXIB
     Indication: Pain management
     Dosage: 100 MG, BID
     Route: 048
  17. CHOLECALCIFEROL [Suspect]
     Active Substance: CHOLECALCIFEROL
     Indication: Vitamin supplementation
     Dosage: 2000 IU, QD
     Route: 048
  18. CLOBAZAM [Suspect]
     Active Substance: CLOBAZAM
     Indication: Back pain
     Dosage: 20 MG, BID
     Route: 048
  19. DIMENHYDRINATE [Suspect]
     Active Substance: DIMENHYDRINATE
     Indication: Pruritus
     Dosage: 25 MG, QD
     Route: 048
  20. DIMENHYDRINATE [Suspect]
     Active Substance: DIMENHYDRINATE
     Indication: Constipation
     Dosage: 20 MG, QD
     Route: 048
  21. DIMENHYDRINATE [Suspect]
     Active Substance: DIMENHYDRINATE
     Dosage: 12.5 MG
     Route: 048
  22. DOCONEXENT [Suspect]
     Active Substance: DOCONEXENT
     Indication: Product used for unknown indication
     Dosage: UNK
     Route: 065
  23. ELIGARD [Suspect]
     Active Substance: LEUPROLIDE ACETATE
     Indication: Product used for unknown indication
     Dosage: UNK
     Route: 058
  24. ELIGARD [Suspect]
     Active Substance: LEUPROLIDE ACETATE
     Indication: Product used for unknown indication
     Dosage: 7.5 MG, QMO (SUSTAINED RELEASE)
     Route: 030
  25. FISH OIL [Suspect]
     Active Substance: FISH OIL
     Indication: Product used for unknown indication
     Dosage: 200 MG, QD (600 EPA/300 DHA)
     Route: 048
  26. FLUOXETINE HYDROCHLORIDE [Suspect]
     Active Substance: FLUOXETINE HYDROCHLORIDE
     Indication: Product used for unknown indication
     Dosage: 20 MG, QD
     Route: 048
  27. FLUTICASONE [Suspect]
     Active Substance: FLUTICASONE
     Indication: Product used for unknown indication
     Dosage: 250 UG, QD
     Route: 048
  28. FLUTICASONE [Suspect]
     Active Substance: FLUTICASONE
     Dosage: 2 DOSAGE FORM, QD
     Route: 045
  29. FLUTICASONE [Suspect]
     Active Substance: FLUTICASONE
     Dosage: 1 DOSAGE FORM, QD
     Route: 045
  30. FLUTICASONE [Suspect]
     Active Substance: FLUTICASONE
     Dosage: UNK, QD
  31. GABAPENTIN [Suspect]
     Active Substance: GABAPENTIN
     Indication: Pain management
     Dosage: 600 MG, TID
     Route: 048
  32. GABAPENTIN [Suspect]
     Active Substance: GABAPENTIN
     Indication: Back pain
     Dosage: 600 MG, BID
     Route: 048
  33. LEUPROLIDE ACETATE [Suspect]
     Active Substance: LEUPROLIDE ACETATE
     Indication: Product used for unknown indication
     Dosage: 7.5 MG, QMO
     Route: 030
  34. LORAZEPAM [Suspect]
     Active Substance: LORAZEPAM
     Indication: Seizure
     Dosage: UNK
     Route: 065
  35. LORAZEPAM [Suspect]
     Active Substance: LORAZEPAM
     Indication: Pain management
     Dosage: 2 MG
     Route: 060
  36. LORAZEPAM [Suspect]
     Active Substance: LORAZEPAM
     Indication: Muscle spasms
     Dosage: 0.5 MG
     Route: 060
  37. LORAZEPAM [Suspect]
     Active Substance: LORAZEPAM
     Indication: Back pain
     Dosage: UNK
     Route: 065
  38. POLYETHYLENE GLYCOLS [Suspect]
     Active Substance: POLYETHYLENE GLYCOLS
     Indication: Product used for unknown indication
     Dosage: 30 MG, BID
     Route: 048
  39. MELATONIN [Suspect]
     Active Substance: MELATONIN
     Indication: Sleep disorder
     Dosage: 10 MG, QD
     Route: 048
  40. MELATONIN [Suspect]
     Active Substance: MELATONIN
     Indication: Sleep deficit
  41. METHADONE [Suspect]
     Active Substance: METHADONE HYDROCHLORIDE
     Indication: Sleep disorder
     Dosage: 10 MG, QD
     Route: 048
  42. METHADONE [Suspect]
     Active Substance: METHADONE HYDROCHLORIDE
     Indication: Child abuse
     Dosage: 0.375 MG, QD
     Route: 048
  43. METHADONE [Suspect]
     Active Substance: METHADONE HYDROCHLORIDE
     Indication: Back pain
     Dosage: 2 MG, TID
     Route: 048
  44. METHADONE [Suspect]
     Active Substance: METHADONE HYDROCHLORIDE
     Indication: Sleep deficit
  45. METHOCARBAMOL [Suspect]
     Active Substance: METHOCARBAMOL
     Indication: Child abuse
     Dosage: UNK
     Route: 048
  46. METHOCARBAMOL [Suspect]
     Active Substance: METHOCARBAMOL
     Indication: Back pain
     Dosage: UNK, BID
     Route: 048
  47. METHOCARBAMOL [Suspect]
     Active Substance: METHOCARBAMOL
     Dosage: 400 MG, BID
     Route: 065
  48. METHOCARBAMOL [Suspect]
     Active Substance: METHOCARBAMOL
     Dosage: UNK
     Route: 065
  49. OMEGA 3 [Suspect]
     Active Substance: CAPSAICIN
     Indication: Product used for unknown indication
     Dosage: 400 MG, QD
     Route: 048
  50. FISH OIL\OMEGA-3 FATTY ACIDS [Suspect]
     Active Substance: FISH OIL\OMEGA-3 FATTY ACIDS
     Indication: Product used for unknown indication
     Dosage: 200 MG, QD
     Route: 048
  51. FISH OIL\OMEGA-3 FATTY ACIDS [Suspect]
     Active Substance: FISH OIL\OMEGA-3 FATTY ACIDS
     Dosage: 400 MG, QD
     Route: 048
  52. FISH OIL\OMEGA-3 FATTY ACIDS [Suspect]
     Active Substance: FISH OIL\OMEGA-3 FATTY ACIDS
     Dosage: UNK
     Route: 065
  53. RANITIDINE HYDROCHLORIDE [Suspect]
     Active Substance: RANITIDINE HYDROCHLORIDE
     Indication: Product used for unknown indication
     Dosage: 150 MG, QD
     Route: 048
  54. ROBAXACET [Suspect]
     Active Substance: ACETAMINOPHEN\METHOCARBAMOL
     Indication: Back pain
     Dosage: 900 MG, QD
     Route: 048
  55. ROBAXACET [Suspect]
     Active Substance: ACETAMINOPHEN\METHOCARBAMOL
     Dosage: 400 MG, BID
     Route: 048
  56. ROBAXISAL [Suspect]
     Active Substance: ASPIRIN\METHOCARBAMOL
     Indication: Product used for unknown indication
     Dosage: 400 MG, BID
     Route: 048
  57. ALBUTEROL [Suspect]
     Active Substance: ALBUTEROL
     Indication: Child abuse
     Dosage: 2 DOSAGE FORM, Q4H,1 EVERY 4 HOURS
     Route: 045
  58. ALBUTEROL [Suspect]
     Active Substance: ALBUTEROL
     Dosage: 600 MG, QD
     Route: 065
  59. ALBUTEROL [Suspect]
     Active Substance: ALBUTEROL
     Dosage: 100 UG, Q4H
     Route: 065
  60. ALBUTEROL [Suspect]
     Active Substance: ALBUTEROL
     Dosage: 100 MG, Q4H 1 EVERY 4 HOURS
     Route: 045
  61. VITAMIN C [Suspect]
     Active Substance: ASCORBIC ACID
     Indication: Child abuse
     Dosage: 1500 MG, QD
     Route: 048
  62. VITAMIN C [Suspect]
     Active Substance: ASCORBIC ACID
     Dosage: 1500 MG, QD
     Route: 048
  63. VITAMIN D3 [Suspect]
     Active Substance: CHOLECALCIFEROL
     Indication: Product used for unknown indication
     Dosage: 2000 IU, QD
     Route: 048
  64. VITAMIN D3 [Suspect]
     Active Substance: CHOLECALCIFEROL
     Dosage: UNK, QD
     Route: 048
  65. HYDROXYCHLOROQUINE [Suspect]
     Active Substance: HYDROXYCHLOROQUINE
     Indication: Child abuse
     Dosage: 400 MG, QD
     Route: 048
  66. HYDROMORPHONE [Suspect]
     Active Substance: HYDROMORPHONE
     Indication: Pain management
     Dosage: UNK
     Route: 065
  67. POLYETHYLENE GLYCOLS [Suspect]
     Active Substance: POLYETHYLENE GLYCOLS
     Indication: Product used for unknown indication
     Dosage: 30 MG, BID
     Route: 048
  68. ACETAMINOPHEN\METHOCARBAMOL [Suspect]
     Active Substance: ACETAMINOPHEN\METHOCARBAMOL
     Indication: Product used for unknown indication
     Dosage: 400 MG, Q12H
     Route: 065
  69. LEUPROLIDE ACETATE [Suspect]
     Active Substance: LEUPROLIDE ACETATE
     Indication: Product used for unknown indication
     Dosage: 7.5 MG, QMO
     Route: 030
  70. TYLENOL [Suspect]
     Active Substance: ACETAMINOPHEN
     Indication: Product used for unknown indication
     Dosage: 400 MG, Q12H
     Route: 065

REACTIONS (13)
  - Epidural lipomatosis [Recovered/Resolved]
  - Juvenile idiopathic arthritis [Recovered/Resolved]
  - Respiratory depression [Recovered/Resolved]
  - Obesity [Recovered/Resolved]
  - Drug abuse [Recovered/Resolved]
  - Drug dependence [Recovered/Resolved]
  - Product use issue [Recovered/Resolved]
  - Product prescribing error [Recovered/Resolved]
  - Intentional product misuse [Recovered/Resolved]
  - Inappropriate schedule of product administration [Recovered/Resolved]
  - Product use in unapproved indication [Recovered/Resolved]
  - Drug ineffective [Recovered/Resolved]
  - Off label use [Recovered/Resolved]
